FAERS Safety Report 5115552-6 (Version None)
Quarter: 2006Q3

REPORT INFORMATION
  Report Type: 
  Country: None (occurrence: None)
  Receive Date: 20060927
  Receipt Date: 20060919
  Transmission Date: 20061208
  Serious: Yes (Hospitalization, Other)
  Sender: FDA-Public Use
  Company Number: US-JNJFOC-20060307422

PATIENT
  Sex: Female
  Weight: 65 kg

DRUGS (1)
  1. ORTHO EVRA [Suspect]
     Indication: CONTRACEPTION
     Dates: start: 20030201, end: 20030301

REACTIONS (15)
  - ANAEMIA [None]
  - CARDIOLIPIN ANTIBODY POSITIVE [None]
  - CEREBRAL HAEMORRHAGE [None]
  - CEREBRAL THROMBOSIS [None]
  - DISEASE RECURRENCE [None]
  - FATIGUE [None]
  - GINGIVAL BLEEDING [None]
  - HEADACHE [None]
  - HYDROCEPHALUS [None]
  - HYPERCOAGULATION [None]
  - INTERNATIONAL NORMALISED RATIO FLUCTUATION [None]
  - INTRACRANIAL VENOUS SINUS THROMBOSIS [None]
  - MENORRHAGIA [None]
  - MUSCLE SPASMS [None]
  - PULMONARY EMBOLISM [None]
